FAERS Safety Report 6856946-8 (Version None)
Quarter: 2010Q3

REPORT INFORMATION
  Report Type: 
  Country: None (occurrence: None)
  Receive Date: 20100719
  Receipt Date: 20100709
  Transmission Date: 20110219
  Serious: Yes (Other)
  Sender: FDA-Public Use
  Company Number: B0666020A

PATIENT
  Sex: Female

DRUGS (3)
  1. ALLI [Suspect]
     Dosage: 60MG SINGLE DOSE
     Route: 048
  2. PINEX FORTE [Concomitant]
  3. SURMONTIL [Concomitant]
     Route: 048

REACTIONS (1)
  - PALPITATIONS [None]
